FAERS Safety Report 9815345 (Version 1)
Quarter: 2014Q1

REPORT INFORMATION
  Report Type: Report from Study
  Country: US (occurrence: US)
  Receive Date: 20140114
  Receipt Date: 20140114
  Transmission Date: 20141002
  Serious: Yes (Death)
  Sender: FDA-Public Use
  Company Number: US-ROCHE-1333311

PATIENT
  Sex: Female

DRUGS (12)
  1. AVASTIN [Suspect]
     Indication: SOFT TISSUE CANCER
     Dosage: 645MG PLACED IN 100ML SODIUM CHLORIDE TO BE INFUSED OVER 90MINUTES
     Route: 042
     Dates: start: 20100406
  2. AVASTIN [Suspect]
     Indication: SARCOMA
     Route: 042
     Dates: start: 201001
  3. AVASTIN [Suspect]
     Route: 042
     Dates: start: 20100504
  4. TYLENOL [Concomitant]
     Route: 048
  5. ARANESP [Concomitant]
     Route: 058
     Dates: start: 20100323
  6. DEXAMETHASONE [Concomitant]
     Dosage: INFUSE OVER 30MINUTES IN 50ML SODIUM CHLORIDE
     Route: 042
     Dates: start: 20100504
  7. GEMZAR [Concomitant]
     Indication: SARCOMA
  8. TAXOL [Concomitant]
     Indication: SARCOMA
  9. ZOLEDRONIC ACID [Concomitant]
     Route: 065
  10. FUROSEMIDE [Concomitant]
     Route: 065
  11. FAMOTIDINE [Concomitant]
  12. PALONOSETRON [Concomitant]
     Route: 065

REACTIONS (2)
  - Death [Fatal]
  - Off label use [Unknown]
